FAERS Safety Report 24245223 (Version 1)
Quarter: 2024Q3

REPORT INFORMATION
  Report Type: Spontaneous
  Country: US (occurrence: US)
  Receive Date: 20240823
  Receipt Date: 20240823
  Transmission Date: 20241016
  Serious: No
  Sender: ABBVIE
  Company Number: US-ABBVIE-5882641

PATIENT
  Sex: Female

DRUGS (1)
  1. HUMIRA [Suspect]
     Active Substance: ADALIMUMAB
     Indication: Rheumatoid arthritis
     Route: 058
     Dates: start: 2023, end: 2023

REACTIONS (7)
  - Gait inability [Unknown]
  - Constipation [Recovered/Resolved]
  - Pain in extremity [Unknown]
  - Osteoarthritis [Not Recovered/Not Resolved]
  - Movement disorder [Unknown]
  - Drug ineffective [Not Recovered/Not Resolved]
  - Incorrect product administration duration [Unknown]

NARRATIVE: CASE EVENT DATE: 20230101
